FAERS Safety Report 20328491 (Version 2)
Quarter: 2022Q1

REPORT INFORMATION
  Report Type: Report from Study
  Country: US (occurrence: US)
  Receive Date: 20220112
  Receipt Date: 20220210
  Transmission Date: 20220423
  Serious: Yes (Hospitalization)
  Sender: FDA-Public Use
  Company Number: US-TAKEDA-2022TUS001816

PATIENT
  Sex: Female
  Weight: 81.6 kg

DRUGS (24)
  1. HUMAN IMMUNOGLOBULIN G [Suspect]
     Active Substance: HUMAN IMMUNOGLOBULIN G
     Indication: Immunodeficiency common variable
     Dosage: 24 GRAM, Q2WEEKS
     Route: 058
     Dates: start: 20210323
  2. ACETAMINOPHEN [Concomitant]
     Active Substance: ACETAMINOPHEN
  3. DIPHENHYDRAMINE [Concomitant]
     Active Substance: DIPHENHYDRAMINE
  4. EPINEPHRINE [Concomitant]
     Active Substance: EPINEPHRINE
  5. Lmx [Concomitant]
  6. CELEBREX [Concomitant]
     Active Substance: CELECOXIB
  7. NORVASC [Concomitant]
     Active Substance: AMLODIPINE BESYLATE
  8. NEURONTIN [Concomitant]
     Active Substance: GABAPENTIN
  9. SINGULAIR [Concomitant]
     Active Substance: MONTELUKAST SODIUM
  10. NEXIUM [Concomitant]
     Active Substance: ESOMEPRAZOLE MAGNESIUM
  11. CARVEDILOL [Concomitant]
     Active Substance: CARVEDILOL
  12. ALBUTEROL [Concomitant]
     Active Substance: ALBUTEROL
  13. ZOLOFT [Concomitant]
     Active Substance: SERTRALINE HYDROCHLORIDE
  14. CLARITIN-D NOS [Concomitant]
     Active Substance: LORATADINE\PSEUDOEPHEDRINE SULFATE
  15. DURAGESIC [Concomitant]
     Active Substance: FENTANYL
  16. NORCO [Concomitant]
     Active Substance: ACETAMINOPHEN\HYDROCODONE BITARTRATE
  17. POTASSIUM [Concomitant]
     Active Substance: POTASSIUM
  18. LASIX [Concomitant]
     Active Substance: FUROSEMIDE
  19. AMLODIPINE [Concomitant]
     Active Substance: AMLODIPINE BESYLATE
  20. PULMICORT TURBUHALER [Concomitant]
     Active Substance: BUDESONIDE
  21. COMBIVENT [Concomitant]
     Active Substance: ALBUTEROL SULFATE\IPRATROPIUM BROMIDE
  22. XOPENEX [Concomitant]
     Active Substance: LEVALBUTEROL HYDROCHLORIDE
  23. ADVAIR HFA [Concomitant]
     Active Substance: FLUTICASONE PROPIONATE\SALMETEROL XINAFOATE
  24. VITAMINS [Concomitant]
     Active Substance: VITAMINS

REACTIONS (3)
  - Surgery [Unknown]
  - Sinusitis [Unknown]
  - Back disorder [Unknown]
